FAERS Safety Report 7572211-8 (Version None)
Quarter: 2011Q2

REPORT INFORMATION
  Report Type: 
  Country: None (occurrence: None)
  Receive Date: 20110624
  Receipt Date: 20110613
  Transmission Date: 20111010
  Serious: Yes (Other)
  Sender: FDA-Public Use
  Company Number: PHHY2011MX53284

PATIENT
  Age: 82 Year
  Sex: Female

DRUGS (1)
  1. DIOVAN HCT [Suspect]
     Indication: HYPERTENSION
     Dosage: 160 MG VALS AND 25 MG HCT, 1 TABLET PER DAY
     Route: 048
     Dates: start: 20110401

REACTIONS (1)
  - HERPES VIRUS INFECTION [None]
